FAERS Safety Report 9439323 (Version 1)
Quarter: 2013Q3

REPORT INFORMATION
  Report Type: Spontaneous
  Country: US (occurrence: US)
  Receive Date: 20130804
  Receipt Date: 20130804
  Transmission Date: 20140515
  Serious: No
  Sender: FDA-Public Use
  Company Number: US-009507513-1307USA006691

PATIENT
  Sex: 0

DRUGS (6)
  1. SAPHRIS [Suspect]
  2. LAMICTAL [Concomitant]
     Dosage: 300 MG, UNK
  3. NUVIGIL [Concomitant]
     Dosage: 125 MG, UNK
  4. LATUDA [Concomitant]
     Dosage: 40 MG, UNK
  5. ATIVAN [Concomitant]
     Dosage: 1 MG, PRN
  6. SEROQUEL [Concomitant]

REACTIONS (3)
  - Feeling abnormal [Unknown]
  - Increased appetite [Unknown]
  - Therapeutic response unexpected [Unknown]
